FAERS Safety Report 10584474 (Version 1)
Quarter: 2014Q4

REPORT INFORMATION
  Report Type: Report from Study
  Country: BR (occurrence: BR)
  Receive Date: 20141114
  Receipt Date: 20141114
  Transmission Date: 20150529
  Serious: Yes (Hospitalization, Other)
  Sender: FDA-Public Use
  Company Number: BR-ABBVIE-14K-020-1307585-00

PATIENT
  Sex: Female

DRUGS (9)
  1. METFORMIN [Concomitant]
     Active Substance: METFORMIN HYDROCHLORIDE
     Indication: DIABETES MELLITUS
     Route: 048
     Dates: start: 2009
  2. HYDROCHLOROTHIAZIDE. [Concomitant]
     Active Substance: HYDROCHLOROTHIAZIDE
     Indication: HYPERTENSION
     Route: 048
     Dates: start: 2010
  3. ACECLOFENAC [Concomitant]
     Active Substance: ACECLOFENAC
     Indication: PAIN
  4. HUMIRA [Suspect]
     Active Substance: ADALIMUMAB
     Indication: RHEUMATOID ARTHRITIS
     Route: 058
     Dates: start: 2011
  5. AMITRIPTYLINE [Concomitant]
     Active Substance: AMITRIPTYLINE
     Indication: DEPRESSION
     Route: 048
     Dates: start: 2010
  6. FRISIUM [Concomitant]
     Active Substance: CLOBAZAM
     Indication: DEPRESSION
     Route: 048
     Dates: start: 2010
  7. ENALAPRIL [Concomitant]
     Active Substance: ENALAPRIL
     Indication: HYPERTENSION
     Route: 048
     Dates: start: 2010
  8. PROPRANOLOL [Concomitant]
     Active Substance: PROPRANOLOL\PROPRANOLOL HYDROCHLORIDE
     Indication: ARRHYTHMIA
     Route: 048
     Dates: start: 2004
  9. ACECLOFENAC [Concomitant]
     Active Substance: ACECLOFENAC
     Indication: ARTHRITIS
     Route: 048
     Dates: start: 201410

REACTIONS (3)
  - Pain [Recovered/Resolved]
  - Intestinal tuberculosis [Recovered/Resolved]
  - Abdominal distension [Recovered/Resolved]
